FAERS Safety Report 15714018 (Version 1)
Quarter: 2018Q4

REPORT INFORMATION
  Report Type: Spontaneous
  Country: IT (occurrence: IT)
  Receive Date: 20181212
  Receipt Date: 20181212
  Transmission Date: 20190205
  Serious: Yes (Other)
  Sender: FDA-Public Use
  Company Number: IT-PFIZER INC-2018511049

PATIENT
  Age: 77 Year
  Sex: Male

DRUGS (7)
  1. ZYLORIC [Concomitant]
     Active Substance: ALLOPURINOL
     Indication: HYPERURICAEMIA
     Dosage: UNK
  2. CLEXANE [Interacting]
     Active Substance: ENOXAPARIN SODIUM
     Indication: ANTICOAGULANT THERAPY
     Dosage: 4000 KIU, DAILY (QD)
     Route: 058
  3. SOLDESAM [Concomitant]
     Active Substance: DEXAMETHASONE
     Indication: STEROID THERAPY
     Dosage: UNK
  4. RANITIDINE. [Concomitant]
     Active Substance: RANITIDINE
     Indication: HYPERCHLORHYDRIA
     Dosage: UNK
  5. CORDARONE [Suspect]
     Active Substance: AMIODARONE HYDROCHLORIDE
     Indication: ANGINA PECTORIS
     Dosage: 200 MG, CYCLIC (QCY)
     Route: 048
  6. SPRYCEL [Interacting]
     Active Substance: DASATINIB
     Indication: ACUTE LYMPHOCYTIC LEUKAEMIA
     Dosage: 100 MG, DAILY
     Route: 048
     Dates: start: 20180801
  7. PAROXETINE. [Concomitant]
     Active Substance: PAROXETINE
     Indication: MAJOR DEPRESSION
     Dosage: UNK

REACTIONS (2)
  - Melaena [Recovering/Resolving]
  - Drug interaction [Unknown]

NARRATIVE: CASE EVENT DATE: 20181107
